FAERS Safety Report 5674881-8 (Version None)
Quarter: 2008Q1

REPORT INFORMATION
  Report Type: 
  Country: None (occurrence: None)
  Receive Date: 20080320
  Receipt Date: 20080317
  Transmission Date: 20080703
  Serious: Yes (Other)
  Sender: FDA-Public Use
  Company Number: US-ASTRAZENECA-2008UW05423

PATIENT
  Age: 58 Year
  Sex: Female
  Weight: 77.1 kg

DRUGS (5)
  1. CRESTOR [Suspect]
     Indication: BLOOD CHOLESTEROL
     Route: 048
  2. SYNTHROID [Concomitant]
  3. EFFEXOR [Concomitant]
  4. FEMARA [Concomitant]
  5. VERAPAMIL [Concomitant]

REACTIONS (1)
  - TRIGEMINAL NEURALGIA [None]
